FAERS Safety Report 9391344 (Version 1)
Quarter: 2013Q3

REPORT INFORMATION
  Report Type: Report from Study
  Country: FR (occurrence: FR)
  Receive Date: 20130709
  Receipt Date: 20130709
  Transmission Date: 20140515
  Serious: Yes (Hospitalization)
  Sender: FDA-Public Use
  Company Number: FR-PFIZER INC-2013193497

PATIENT
  Age: 77 Year
  Sex: Female

DRUGS (2)
  1. SUTENT [Suspect]
     Indication: METASTATIC RENAL CELL CARCINOMA
     Dosage: 50 MG, UNK
     Route: 048
     Dates: start: 20110318
  2. SUTENT [Suspect]
     Dosage: 37.5 MG, UNK
     Route: 048

REACTIONS (2)
  - General physical health deterioration [Recovered/Resolved]
  - Dehydration [Recovered/Resolved]
